FAERS Safety Report 4313379-6 (Version None)
Quarter: 2004Q1

REPORT INFORMATION
  Report Type: 
  Country: None (occurrence: None)
  Receive Date: 20040305
  Receipt Date: 20040305
  Transmission Date: 20041129
  Serious: No
  Sender: FDA-Public Use
  Company Number: None

PATIENT
  Age: 57 Year
  Sex: Female
  Weight: 107.9561 kg

DRUGS (4)
  1. DOXIL [Suspect]
     Indication: OVARIAN CANCER
     Dosage: 80 MG IV OVER 90 MIN
     Route: 042
     Dates: start: 20040107
  2. DOXIL [Suspect]
  3. KYTRIL [Concomitant]
  4. DEX [Concomitant]

REACTIONS (4)
  - CARDIAC DISORDER [None]
  - COUGH [None]
  - FEELING ABNORMAL [None]
  - RASH [None]
